FAERS Safety Report 24529769 (Version 1)
Quarter: 2024Q4

REPORT INFORMATION
  Report Type: Spontaneous
  Country: US (occurrence: US)
  Receive Date: 20241021
  Receipt Date: 20241021
  Transmission Date: 20250115
  Serious: Yes (Hospitalization)
  Sender: GRIFOLS
  Company Number: US-IGSA-BIG0031069

PATIENT
  Age: 40 Year
  Sex: Female

DRUGS (1)
  1. XEMBIFY [Suspect]
     Active Substance: HUMAN IMMUNOGLOBULIN G
     Indication: Hypogammaglobulinaemia
     Dosage: 20 GRAM, Q.WK.
     Route: 058
     Dates: start: 20210701

REACTIONS (2)
  - Asthma [Unknown]
  - Tooth infection [Unknown]

NARRATIVE: CASE EVENT DATE: 20240817
